FAERS Safety Report 13135851 (Version 1)
Quarter: 2017Q1

REPORT INFORMATION
  Report Type: Report from Study
  Country: US (occurrence: US)
  Receive Date: 20170120
  Receipt Date: 20170120
  Transmission Date: 20170428
  Serious: Yes (Other)
  Sender: FDA-Public Use
  Company Number: US-GILEAD-2017-0254062

PATIENT
  Sex: Female

DRUGS (1)
  1. LEDIPASVIR/SOFOSBUVIR [Suspect]
     Active Substance: LEDIPASVIR\SOFOSBUVIR
     Indication: HEPATITIS C
     Dosage: 1 UNK, UNK
     Route: 048
     Dates: start: 20151028, end: 20160120

REACTIONS (16)
  - Insomnia [Unknown]
  - Hypoaesthesia [Unknown]
  - Pain [Unknown]
  - Memory impairment [Unknown]
  - Feeling abnormal [Unknown]
  - Headache [Unknown]
  - Emotional disorder [Unknown]
  - Anger [Unknown]
  - Nausea [Unknown]
  - Urticaria [Unknown]
  - Suicidal ideation [Unknown]
  - Anxiety [Unknown]
  - Paraesthesia [Unknown]
  - Back pain [Unknown]
  - Eating disorder [Unknown]
  - Depression [Unknown]
